FAERS Safety Report 12007100 (Version 2)
Quarter: 2016Q2

REPORT INFORMATION
  Report Type: Spontaneous
  Country: US (occurrence: US)
  Receive Date: 20160204
  Receipt Date: 20160516
  Transmission Date: 20160815
  Serious: Yes (Other)
  Sender: FDA-Public Use
  Company Number: US-TEVA-629979USA

PATIENT
  Sex: Female

DRUGS (1)
  1. COPAXONE [Suspect]
     Active Substance: GLATIRAMER ACETATE
     Indication: MULTIPLE SCLEROSIS
     Route: 058
     Dates: start: 20060505

REACTIONS (5)
  - Loss of consciousness [Recovered/Resolved]
  - Joint swelling [Not Recovered/Not Resolved]
  - Immediate post-injection reaction [Recovered/Resolved]
  - Fall [Recovered/Resolved]
  - Lymphoedema [Not Recovered/Not Resolved]
